FAERS Safety Report 15750037 (Version 6)
Quarter: 2019Q3

REPORT INFORMATION
  Report Type: Report from Study
  Country: US (occurrence: US)
  Receive Date: 20181221
  Receipt Date: 20190726
  Transmission Date: 20191004
  Serious: Yes (Hospitalization, Other)
  Sender: FDA-Public Use
  Company Number: US-JNJFOC-20181023046

PATIENT
  Age: 67 Year
  Sex: Male

DRUGS (10)
  1. ZANTAC [Concomitant]
     Active Substance: RANITIDINE HYDROCHLORIDE
  2. PREDNISONE. [Concomitant]
     Active Substance: PREDNISONE
  3. BACTRIM [Concomitant]
     Active Substance: SULFAMETHOXAZOLE\TRIMETHOPRIM
  4. ALLOPURINOL. [Concomitant]
     Active Substance: ALLOPURINOL
  5. POTASSIUM [Concomitant]
     Active Substance: POTASSIUM
  6. ADVIL [Concomitant]
     Active Substance: IBUPROFEN
  7. BIFIDOBACTERIUM LACTIS [Concomitant]
     Active Substance: BIFIDOBACTERIUM ANIMALIS LACTIS
  8. IMBRUVICA [Suspect]
     Active Substance: IBRUTINIB
     Indication: CHRONIC LYMPHOCYTIC LEUKAEMIA
     Route: 048
     Dates: start: 20180810, end: 2018
  9. IMBRUVICA [Suspect]
     Active Substance: IBRUTINIB
     Indication: GOUT
  10. ADVIL [Concomitant]
     Active Substance: IBUPROFEN

REACTIONS (6)
  - Pneumonia [Unknown]
  - Pleural effusion [Recovering/Resolving]
  - Post procedural haemorrhage [Unknown]
  - Lymphadenopathy [Unknown]
  - Chronic myeloid leukaemia [Unknown]
  - Sinusitis [Unknown]

NARRATIVE: CASE EVENT DATE: 20180815
